FAERS Safety Report 8217453-3 (Version None)
Quarter: 2012Q1

REPORT INFORMATION
  Report Type: 
  Country: None (occurrence: None)
  Receive Date: 20120301
  Receipt Date: 20111103
  Transmission Date: 20120608
  Serious: Yes (Hospitalization)
  Sender: FDA-Public Use
  Company Number: 2011CP000178

PATIENT
  Sex: Male

DRUGS (4)
  1. ACETAMINOPHEN [Suspect]
     Indication: PERIOPERATIVE ANALGESIA
     Dosage: 1 GRAM; Q 6 HRS; IV
     Route: 042
  2. DEMEROL [Suspect]
  3. TORADOL [Suspect]
     Dosage: IV
     Route: 042
  4. GASTROGRAFIN [Suspect]

REACTIONS (2)
  - NAUSEA [None]
  - VOMITING [None]
